FAERS Safety Report 6876337-3 (Version None)
Quarter: 2010Q3

REPORT INFORMATION
  Report Type: 
  Country: None (occurrence: None)
  Receive Date: 20100727
  Receipt Date: 20070702
  Transmission Date: 20110219
  Serious: Yes (Hospitalization, Disabling, Other)
  Sender: FDA-Public Use
  Company Number: US-PFIZER INC-2005124575

PATIENT
  Sex: Female
  Weight: 78.9 kg

DRUGS (10)
  1. CELEBREX [Suspect]
     Indication: BACK PAIN
     Dates: start: 20020201
  2. VIOXX [Suspect]
     Indication: BACK PAIN
     Dates: start: 20011101, end: 20020201
  3. BUTORPHANOL TARTRATE [Concomitant]
     Dates: start: 20021101, end: 20030821
  4. CARISOPRODOL [Concomitant]
     Dates: start: 20020312, end: 20021116
  5. DARVOCET [Concomitant]
     Dates: start: 20010601
  6. PROPACET 100 [Concomitant]
     Dates: start: 20010601
  7. CLONIDINE [Concomitant]
     Dates: start: 20001122, end: 20031229
  8. HYDROCHLOROTHIAZIDE [Concomitant]
     Dates: start: 20020501, end: 20020701
  9. VALSARTAN [Concomitant]
     Dates: start: 20020116, end: 20031212
  10. PROPRANOLOL HYDROCHLORIDE [Concomitant]
     Dates: start: 20020514, end: 20020910

REACTIONS (3)
  - CEREBROVASCULAR ACCIDENT [None]
  - HEART INJURY [None]
  - TRANSIENT ISCHAEMIC ATTACK [None]
